FAERS Safety Report 13346695 (Version 1)
Quarter: 2017Q1

REPORT INFORMATION
  Report Type: Spontaneous
  Country: US (occurrence: US)
  Receive Date: 20170317
  Receipt Date: 20170317
  Transmission Date: 20170428
  Serious: Yes (Other)
  Sender: FDA-Public Use
  Company Number: US-MYLANLABS-2017M1016426

PATIENT

DRUGS (1)
  1. EDROPHONIUM CHLORIDE [Suspect]
     Active Substance: EDROPHONIUM CHLORIDE
     Indication: EYE MOVEMENT DISORDER
     Dosage: 100MG/10ML; 10ML SLOW IV PUSH WAS ADMINISTERED
     Route: 042

REACTIONS (6)
  - Salivary hypersecretion [Recovered/Resolved]
  - Bradycardia [Recovered/Resolved]
  - Miosis [Recovered/Resolved]
  - Ophthalmoplegia [Recovered/Resolved]
  - Overdose [Recovered/Resolved]
  - Agitation [Recovered/Resolved]
